FAERS Safety Report 7027649-4 (Version None)
Quarter: 2010Q4

REPORT INFORMATION
  Report Type: 
  Country: None (occurrence: None)
  Receive Date: 20101004
  Receipt Date: 20100921
  Transmission Date: 20110411
  Serious: Yes (Other)
  Sender: FDA-Public Use
  Company Number: GB-WATSON-2010-13003

PATIENT
  Age: 61 Year
  Sex: Male

DRUGS (2)
  1. PREDNISOLONE [Suspect]
     Indication: TEMPORAL ARTERITIS
     Dosage: 40 MG, DAILY
  2. PREDNISOLONE [Suspect]
     Dosage: 35 MG, DAILY

REACTIONS (1)
  - CEREBROVASCULAR ACCIDENT [None]
